FAERS Safety Report 9171165 (Version 1)
Quarter: 2013Q1

REPORT INFORMATION
  Report Type: Spontaneous
  Country: US (occurrence: None)
  Receive Date: 20130318
  Receipt Date: 20130318
  Transmission Date: 20140127
  Serious: Yes (Life-Threatening)
  Sender: FDA-Public Use
  Company Number: None

PATIENT
  Sex: Male
  Weight: 104.33 kg

DRUGS (2)
  1. ATENOLOL [Suspect]
     Route: 048
  2. FINASTERIDE [Suspect]
     Route: 048

REACTIONS (3)
  - Erectile dysfunction [None]
  - Prostatic atrophy [None]
  - Male genital atrophy [None]
